FAERS Safety Report 5235959-6 (Version None)
Quarter: 2007Q1

REPORT INFORMATION
  Report Type: 
  Country: None (occurrence: None)
  Receive Date: 20070212
  Receipt Date: 20070130
  Transmission Date: 20070707
  Serious: Yes (Other)
  Sender: FDA-Public Use
  Company Number: PHEH2007US01504

PATIENT
  Sex: Female

DRUGS (2)
  1. GLEEVEC [Suspect]
     Indication: LEUKAEMIA
     Dosage: UNK, UNK
     Route: 048
     Dates: start: 20050101
  2. GLEEVEC [Suspect]
     Dosage: 4/DAY
     Route: 048

REACTIONS (4)
  - BONE NEOPLASM MALIGNANT [None]
  - BREAST CANCER [None]
  - HEPATIC NEOPLASM MALIGNANT [None]
  - LEUKAEMIA RECURRENT [None]
